FAERS Safety Report 5243878-4 (Version None)
Quarter: 2007Q1

REPORT INFORMATION
  Report Type: 
  Country: None (occurrence: None)
  Receive Date: 20070222
  Receipt Date: 20070211
  Transmission Date: 20070707
  Serious: Yes (Other)
  Sender: FDA-Public Use
  Company Number: CA-JNJFOC-20060403402

PATIENT
  Sex: Female
  Weight: 115 kg

DRUGS (8)
  1. REMICADE [Suspect]
     Route: 042
  2. REMICADE [Suspect]
     Route: 042
  3. REMICADE [Suspect]
     Route: 042
  4. REMICADE [Suspect]
     Dosage: RECEIVED AT WEEK 6 (DATE NOT SPECIFIED)
     Route: 042
  5. REMICADE [Suspect]
     Dosage: RECEIVED AT WEEK 2 (DATE NOT SPECIFIED)
     Route: 042
  6. REMICADE [Suspect]
     Indication: CROHN'S DISEASE
     Dosage: RECEIVED AT 0 WEEK (DATE NOT SPECIFIED)
     Route: 042
  7. METHOTREXATE [Concomitant]
     Indication: CROHN'S DISEASE
     Route: 030
  8. PENTASA [Concomitant]
     Route: 048

REACTIONS (8)
  - ANAPHYLACTIC REACTION [None]
  - CROHN'S DISEASE [None]
  - DRUG EXPOSURE DURING PREGNANCY [None]
  - DRY EYE [None]
  - DRY MOUTH [None]
  - LUPUS-LIKE SYNDROME [None]
  - MYALGIA [None]
  - PHOTOSENSITIVITY REACTION [None]
